FAERS Safety Report 5243201-5 (Version None)
Quarter: 2007Q1

REPORT INFORMATION
  Report Type: 
  Country: None (occurrence: None)
  Receive Date: 20070215
  Receipt Date: 20070207
  Transmission Date: 20070707
  Serious: Yes (Life-Threatening, Hospitalization)
  Sender: FDA-Public Use
  Company Number: 2007US000290

PATIENT
  Age: 35 Year
  Sex: Female

DRUGS (7)
  1. AMBISOME [Suspect]
     Indication: CRYPTOCOCCOSIS
     Dosage: 150 MG, UNK, IV NOS
     Route: 042
     Dates: start: 20060921, end: 20061002
  2. TRUVADA [Suspect]
     Indication: DRUG USE FOR UNKNOWN INDICATION
     Dosage: ORAL
     Route: 048
     Dates: start: 20060201
  3. BAKTAR (SULFAMETHOXAZOLE, TRIMETHOPRIM) [Concomitant]
  4. AZITHROMYCIN [Concomitant]
  5. DIFLUCAN [Concomitant]
  6. EFAVIRENZ [Concomitant]
  7. ANCOTIL (FLUCYTOSINE) [Concomitant]

REACTIONS (1)
  - BRAIN HERNIATION [None]
